FAERS Safety Report 8552916-2 (Version None)
Quarter: 2012Q3

REPORT INFORMATION
  Report Type: 
  Country: None (occurrence: None)
  Receive Date: 20120731
  Receipt Date: 20120720
  Transmission Date: 20120928
  Serious: Yes (Hospitalization)
  Sender: FDA-Public Use
  Company Number: US-BAYER-2012-019558

PATIENT
  Age: 19 Year
  Sex: Female
  Weight: 72.562 kg

DRUGS (7)
  1. DROSPIRENONE AND ETHINYL ESTRADIOL [Suspect]
     Indication: CONTRACEPTION
     Dosage: UNK
     Dates: start: 20101201, end: 20111001
  2. ANALGESICS [Concomitant]
     Indication: UNEVALUABLE INVESTIGATION
     Dosage: WITHIN TWENTY (20) DAY PERIOD BEFORE THE ONSET 0/ THE INJURIES
  3. NAPROXEN SODIUM [Concomitant]
     Indication: TENDON RUPTURE
     Dosage: UNK
     Dates: start: 20110816
  4. DROSPIRENONE AND ETHINYL ESTRADIOL [Suspect]
     Indication: PREMENSTRUAL SYNDROME
  5. ONE A DAY [Concomitant]
     Indication: MEDICAL DIET
     Dosage: UNK
     Dates: start: 20110801, end: 20111025
  6. IBUPROFEN [Concomitant]
     Indication: ANALGESIC THERAPY
     Dosage: WITHIN TWENTY (20) DAY PERIOD BEFORE THE ONSET 0/ THE INJURIES
  7. FEXOFENADINE [Concomitant]
     Indication: MULTIPLE ALLERGIES
     Dosage: UNK
     Dates: start: 20080101, end: 20110101

REACTIONS (6)
  - GENERAL PHYSICAL HEALTH DETERIORATION [None]
  - EMOTIONAL DISTRESS [None]
  - INJURY [None]
  - DEEP VEIN THROMBOSIS [None]
  - ANXIETY [None]
  - PAIN [None]
